FAERS Safety Report 9162548 (Version 2)
Quarter: 2013Q1

REPORT INFORMATION
  Report Type: Spontaneous
  Country: CA (occurrence: CA)
  Receive Date: 20130314
  Receipt Date: 20130329
  Transmission Date: 20140127
  Serious: Yes (Other)
  Sender: FDA-Public Use
  Company Number: CA-AMGEN-CANSP2013015771

PATIENT
  Age: 60 Year
  Sex: Female
  Weight: 78 kg

DRUGS (3)
  1. XGEVA [Suspect]
     Indication: BREAST CANCER
     Dosage: UNK
     Dates: start: 20120906
  2. LORAZEPAM [Concomitant]
  3. LYRICA [Concomitant]

REACTIONS (7)
  - Neoplasm [Not Recovered/Not Resolved]
  - Jaw disorder [Not Recovered/Not Resolved]
  - Vomiting [Unknown]
  - Hypoaesthesia [Unknown]
  - Visual impairment [Unknown]
  - Headache [Unknown]
  - Trismus [Not Recovered/Not Resolved]
